FAERS Safety Report 5385426-4 (Version None)
Quarter: 2007Q3

REPORT INFORMATION
  Report Type: 
  Country: None (occurrence: None)
  Receive Date: 20070706
  Receipt Date: 20070706
  Transmission Date: 20080115
  Serious: Yes (Death)
  Sender: FDA-Public Use
  Company Number: None

PATIENT
  Age: 1 Year
  Sex: Female
  Weight: 8.4 kg

DRUGS (3)
  1. ZIDOVUDINE [Suspect]
     Indication: HIV INFECTION
     Dosage: 70 MG BD ORAL
     Route: 048
     Dates: start: 20070514, end: 20070602
  2. LAMIVUDINE [Suspect]
     Indication: HIV INFECTION
     Dosage: 30 MG BD ORAL
     Route: 048
     Dates: start: 20070514, end: 20070602
  3. LOPINAVIR AND RITONAVIR [Suspect]
     Indication: HIV INFECTION
     Dosage: 120 MG BD ORAL
     Route: 048
     Dates: start: 20070514, end: 20070602

REACTIONS (2)
  - CHEST DISCOMFORT [None]
  - PNEUMONIA [None]
